FAERS Safety Report 16313989 (Version 1)
Quarter: 2019Q2

REPORT INFORMATION
  Report Type: Spontaneous
  Country: US (occurrence: US)
  Receive Date: 20190515
  Receipt Date: 20190515
  Transmission Date: 20190711
  Serious: No
  Sender: FDA-Public Use
  Company Number: US-ASTRAZENECA-2018SE29099

PATIENT
  Age: 886 Month
  Sex: Male

DRUGS (3)
  1. BYDUREON BCISE [Suspect]
     Active Substance: EXENATIDE
     Indication: TYPE 2 DIABETES MELLITUS
     Route: 058
     Dates: start: 201802
  2. LANTUS [Concomitant]
     Active Substance: INSULIN GLARGINE
  3. NOVOLOG [Concomitant]
     Active Substance: INSULIN ASPART

REACTIONS (8)
  - Injection site haemorrhage [Unknown]
  - Injection site erythema [Unknown]
  - Device leakage [Unknown]
  - Intentional product misuse [Unknown]
  - Injection site swelling [Unknown]
  - Injection site pain [Unknown]
  - Wrong technique in product usage process [Unknown]
  - Incorrect dose administered by device [Unknown]

NARRATIVE: CASE EVENT DATE: 201802
